FAERS Safety Report 16914486 (Version 2)
Quarter: 2020Q1

REPORT INFORMATION
  Report Type: Spontaneous
  Country: US (occurrence: US)
  Receive Date: 20191014
  Receipt Date: 20200108
  Transmission Date: 20200409
  Serious: No
  Sender: FDA-Public Use
  Company Number: US-JNJFOC-20190936170

PATIENT
  Age: 33 Year
  Sex: Male
  Weight: 145.28 kg

DRUGS (4)
  1. TREMFYA [Suspect]
     Active Substance: GUSELKUMAB
     Indication: PSORIASIS
     Route: 058
     Dates: start: 201810, end: 201812
  2. OLMESARTAN [Concomitant]
     Active Substance: OLMESARTAN
  3. ATENOLOL. [Concomitant]
     Active Substance: ATENOLOL
  4. TREMFYA [Suspect]
     Active Substance: GUSELKUMAB
     Route: 058
     Dates: start: 201911

REACTIONS (5)
  - Delusion [Unknown]
  - Off label use [Unknown]
  - Product dose omission [Unknown]
  - Product use issue [Unknown]
  - Psoriasis [Unknown]

NARRATIVE: CASE EVENT DATE: 201812
